FAERS Safety Report 5411440-6 (Version None)
Quarter: 2007Q3

REPORT INFORMATION
  Report Type: 
  Country: None (occurrence: None)
  Receive Date: 20070810
  Receipt Date: 20070731
  Transmission Date: 20080115
  Serious: Yes (Death, Hospitalization)
  Sender: FDA-Public Use
  Company Number: DE-BAUSCH-2007BL002695

PATIENT
  Age: 77 Year
  Sex: Female

DRUGS (1)
  1. CIPROFLOXACIN HYDROCHLORIDE [Suspect]
     Indication: ANTI-INFECTIVE THERAPY
     Route: 065

REACTIONS (3)
  - CEREBRAL HAEMORRHAGE [None]
  - FACTOR XIII DEFICIENCY [None]
  - FACTOR XIII INHIBITION [None]
